FAERS Safety Report 14094248 (Version 3)
Quarter: 2017Q4

REPORT INFORMATION
  Report Type: Spontaneous
  Country: US (occurrence: US)
  Receive Date: 20171016
  Receipt Date: 20171120
  Transmission Date: 20180321
  Serious: No
  Sender: FDA-Public Use
  Company Number: US-SUNOVION-2017SUN004327

PATIENT

DRUGS (1)
  1. LATUDA [Suspect]
     Active Substance: LURASIDONE HYDROCHLORIDE
     Dosage: UNK
     Route: 048

REACTIONS (9)
  - Akathisia [Not Recovered/Not Resolved]
  - Sedation [Unknown]
  - Drug dose omission [Unknown]
  - Discomfort [Not Recovered/Not Resolved]
  - Thinking abnormal [Unknown]
  - Alopecia [Unknown]
  - Anxiety [Unknown]
  - Muscle spasms [Unknown]
  - Restlessness [Unknown]
